FAERS Safety Report 8077924-X (Version None)
Quarter: 2012Q1

REPORT INFORMATION
  Report Type: 
  Country: None (occurrence: None)
  Receive Date: 20120127
  Receipt Date: 20110104
  Transmission Date: 20120608
  Serious: No
  Sender: FDA-Public Use
  Company Number: US-ABBOTT-11P-163-0695394-00

PATIENT
  Sex: Female
  Weight: 81.72 kg

DRUGS (7)
  1. CLONAZEPAM [Concomitant]
     Indication: ANXIETY
  2. MULTAQ [Concomitant]
     Indication: ATRIAL FIBRILLATION
  3. CORICIDIN [Suspect]
     Indication: NASOPHARYNGITIS
     Dates: start: 20110103
  4. HUMIRA [Suspect]
     Indication: RHEUMATOID ARTHRITIS
     Dates: start: 20050101, end: 20101101
  5. PRILOSEC [Concomitant]
     Indication: GASTROOESOPHAGEAL REFLUX DISEASE
  6. METHOTREXATE [Concomitant]
     Indication: PRODUCT USED FOR UNKNOWN INDICATION
  7. METOPROLOL TARTRATE [Concomitant]
     Indication: PRODUCT USED FOR UNKNOWN INDICATION

REACTIONS (6)
  - NASOPHARYNGITIS [None]
  - FATIGUE [None]
  - PAIN [None]
  - NASAL CONGESTION [None]
  - COUGH [None]
  - DIZZINESS [None]
